FAERS Safety Report 6511393-3 (Version None)
Quarter: 2009Q4

REPORT INFORMATION
  Report Type: 
  Country: None (occurrence: None)
  Receive Date: 20091222
  Receipt Date: 20090310
  Transmission Date: 20100525
  Serious: No
  Sender: FDA-Public Use
  Company Number: US-ASTRAZENECA-2009UW06338

PATIENT
  Age: 24442 Day
  Sex: Female

DRUGS (2)
  1. CRESTOR [Suspect]
     Indication: BLOOD CHOLESTEROL
     Route: 048
     Dates: start: 20080101, end: 20080101
  2. CRESTOR [Suspect]
     Route: 048
     Dates: start: 20090307, end: 20090301

REACTIONS (3)
  - FLANK PAIN [None]
  - MUSCLE SPASMS [None]
  - URINARY INCONTINENCE [None]
